FAERS Safety Report 23163862 (Version 5)
Quarter: 2024Q1

REPORT INFORMATION
  Report Type: Spontaneous
  Country: US (occurrence: US)
  Receive Date: 20231109
  Receipt Date: 20240321
  Transmission Date: 20240410
  Serious: No
  Sender: FDA-Public Use
  Company Number: US-PFIZER INC-202300349981

PATIENT
  Age: 15 Year
  Sex: Male

DRUGS (1)
  1. GENOTROPIN [Suspect]
     Active Substance: SOMATROPIN
     Indication: Growth disorder
     Dosage: 2.2 MG, DAILY

REACTIONS (5)
  - Circumstance or information capable of leading to device use error [Unknown]
  - Device use issue [Unknown]
  - Device power source issue [Unknown]
  - Device malfunction [Unknown]
  - Expired device used [Unknown]
